FAERS Safety Report 16592170 (Version 2)
Quarter: 2019Q3

REPORT INFORMATION
  Report Type: Spontaneous
  Country: US (occurrence: US)
  Receive Date: 20190718
  Receipt Date: 20190725
  Transmission Date: 20191004
  Serious: Yes (Hospitalization, Other)
  Sender: FDA-Public Use
  Company Number: US-PFIZER INC-2019304053

PATIENT
  Age: 1 Year
  Sex: Male

DRUGS (6)
  1. PROCAINE BENZYLPENICILLIN [Suspect]
     Active Substance: PENICILLIN G PROCAINE
     Dosage: 300000 IU, UNK
     Route: 030
  2. BENZATHINE BENZYLPENICILLIN [Suspect]
     Active Substance: PENICILLIN G BENZATHINE
     Indication: OTITIS MEDIA
     Dosage: 1200000 IU
     Route: 030
  3. BENZATHINE BENZYLPENICILLIN [Suspect]
     Active Substance: PENICILLIN G BENZATHINE
     Dosage: 600000 IU, UNK
     Route: 030
  4. BENZYLPENICILLIN POTASSIUM [Suspect]
     Active Substance: PENICILLIN G POTASSIUM
     Indication: OTITIS MEDIA
     Dosage: 1200000 IU, UNK
     Route: 030
  5. BENZYLPENICILLIN POTASSIUM [Suspect]
     Active Substance: PENICILLIN G POTASSIUM
     Dosage: 300000 IU, UNK
     Route: 030
  6. PROCAINE BENZYLPENICILLIN [Suspect]
     Active Substance: PENICILLIN G PROCAINE
     Indication: OTITIS MEDIA
     Dosage: 1200000 IU, UNK
     Route: 030

REACTIONS (2)
  - Incorrect route of product administration [Unknown]
  - Ischaemia [Recovered/Resolved]
